FAERS Safety Report 14249684 (Version 3)
Quarter: 2018Q1

REPORT INFORMATION
  Report Type: Spontaneous
  Country: US (occurrence: US)
  Receive Date: 20171205
  Receipt Date: 20180130
  Transmission Date: 20180508
  Serious: Yes (Other)
  Sender: FDA-Public Use
  Company Number: US-B.I. PHARMACEUTICALS,INC./RIDGEFIELD-2017-BI-063866

PATIENT
  Age: 62 Year
  Sex: Male

DRUGS (1)
  1. COMBIVENT [Suspect]
     Active Substance: ALBUTEROL SULFATE\IPRATROPIUM BROMIDE
     Indication: WHEEZING
     Dosage: 20 MCG/ 100 MCG; 4 PUFFS PER DAY
     Route: 055
     Dates: start: 2012

REACTIONS (15)
  - Hydrocephalus [Not Recovered/Not Resolved]
  - Foot fracture [Not Recovered/Not Resolved]
  - Contusion [Not Recovered/Not Resolved]
  - Headache [Not Recovered/Not Resolved]
  - Vision blurred [Not Recovered/Not Resolved]
  - Pleural effusion [Not Recovered/Not Resolved]
  - Visual impairment [Not Recovered/Not Resolved]
  - Furuncle [Not Recovered/Not Resolved]
  - Choking [Not Recovered/Not Resolved]
  - Visual impairment [Not Recovered/Not Resolved]
  - Pain in extremity [Not Recovered/Not Resolved]
  - Device issue [Unknown]
  - Dysphonia [Not Recovered/Not Resolved]
  - Amblyopia [Not Recovered/Not Resolved]
  - Lacrimation increased [Not Recovered/Not Resolved]

NARRATIVE: CASE EVENT DATE: 2013
